FAERS Safety Report 25137865 (Version 2)
Quarter: 2025Q2

REPORT INFORMATION
  Report Type: Report from Study
  Country: US (occurrence: US)
  Receive Date: 20250329
  Receipt Date: 20250528
  Transmission Date: 20250716
  Serious: Yes (Disabling, Other)
  Sender: JAZZ
  Company Number: US-JAZZ-2022-US-001352

PATIENT
  Age: 64 Year
  Sex: Female

DRUGS (43)
  1. XYREM [Suspect]
     Active Substance: SODIUM OXYBATE
     Indication: Narcolepsy
     Dosage: 3 GRAM, BID
     Route: 048
     Dates: start: 200509, end: 201208
  2. XYREM [Suspect]
     Active Substance: SODIUM OXYBATE
     Indication: Cataplexy
     Route: 048
     Dates: start: 201208, end: 202110
  3. XYREM [Suspect]
     Active Substance: SODIUM OXYBATE
     Indication: Somnolence
     Dosage: 2.5 GRAM, BID
     Route: 048
     Dates: start: 202110
  4. XYREM [Suspect]
     Active Substance: SODIUM OXYBATE
     Indication: Fibromyalgia
  5. CRESTOR [Concomitant]
     Active Substance: ROSUVASTATIN CALCIUM
     Dates: start: 20130617
  6. LEXAPRO [Concomitant]
     Active Substance: ESCITALOPRAM OXALATE
     Dates: start: 20130730
  7. WELLBUTRIN XL [Concomitant]
     Active Substance: BUPROPION HYDROCHLORIDE
     Dates: start: 20130730
  8. POTASSIUM CHLORIDE [Concomitant]
     Active Substance: POTASSIUM CHLORIDE
     Dates: start: 20130730
  9. ASPIRIN [Concomitant]
     Active Substance: ASPIRIN
     Dates: start: 20151008
  10. LORATADINE [Concomitant]
     Active Substance: LORATADINE
     Dates: start: 20151008
  11. UBIQUINOL [Concomitant]
     Active Substance: UBIQUINOL
     Dates: start: 20151008
  12. UBIQUINOL [Concomitant]
     Active Substance: UBIQUINOL
     Dates: start: 20211201
  13. MAG SR [Concomitant]
     Dates: start: 20151008
  14. ONE DAILY WOMEN^S [MINERALS NOS;VACCINIUM SPP.;VITAMINS NOS] [Concomitant]
     Dates: start: 20151008
  15. ONE DAILY WOMEN^S [MINERALS NOS;VACCINIUM SPP.;VITAMINS NOS] [Concomitant]
     Dates: start: 20230201
  16. CALCIUM CHLORIDE [Concomitant]
     Active Substance: CALCIUM CHLORIDE
     Dates: start: 20151008
  17. COROMEGA OMEGA 3 SQUEEZE [Concomitant]
     Dates: start: 20151008
  18. COROMEGA OMEGA 3 SQUEEZE [Concomitant]
     Dates: start: 20211201
  19. DIETARY SUPPLEMENT [Concomitant]
     Active Substance: DIETARY SUPPLEMENT
     Dates: start: 20151008
  20. ALCOHOL [Concomitant]
     Active Substance: ALCOHOL
     Dates: start: 20151009
  21. HYDROCHLOROTHIAZIDE [Concomitant]
     Active Substance: HYDROCHLOROTHIAZIDE
     Dates: start: 20210601
  22. HYDRALAZINE [Concomitant]
     Active Substance: HYDRALAZINE HYDROCHLORIDE
     Dates: start: 20210701
  23. PANTOPRAZOLE SODIUM [Concomitant]
     Active Substance: PANTOPRAZOLE SODIUM
     Dates: start: 20210731
  24. BUPROPION HYDROCHLORIDE XL [Concomitant]
     Active Substance: BUPROPION HYDROCHLORIDE
  25. BUPROPION HYDROCHLORIDE XL [Concomitant]
     Active Substance: BUPROPION HYDROCHLORIDE
  26. ESCITALOPRAM [Concomitant]
     Active Substance: ESCITALOPRAM OXALATE
  27. ESCITALOPRAM [Concomitant]
     Active Substance: ESCITALOPRAM OXALATE
  28. VALSARTAN [Concomitant]
     Active Substance: VALSARTAN
  29. VALSARTAN [Concomitant]
     Active Substance: VALSARTAN
  30. ROSUVASTATIN [Concomitant]
     Active Substance: ROSUVASTATIN
  31. ROSUVASTATIN [Concomitant]
     Active Substance: ROSUVASTATIN
  32. FAMOTIDINE [Concomitant]
     Active Substance: FAMOTIDINE
  33. FAMOTIDINE [Concomitant]
     Active Substance: FAMOTIDINE
  34. KETOCONAZOLE [Concomitant]
     Active Substance: KETOCONAZOLE
  35. KETOCONAZOLE [Concomitant]
     Active Substance: KETOCONAZOLE
  36. ALENDRONATE SODIUM [Concomitant]
     Active Substance: ALENDRONATE SODIUM
  37. ALENDRONATE SODIUM [Concomitant]
     Active Substance: ALENDRONATE SODIUM
  38. CALCIUM CITRATE [Concomitant]
     Active Substance: CALCIUM CITRATE
     Dates: start: 20230201
  39. MAGNESIUM MALATE [Concomitant]
     Active Substance: MAGNESIUM MALATE
     Dates: start: 20220801
  40. GLUCOSAMINE CHONDROINATO [Concomitant]
     Dates: start: 20230201
  41. MSM [Concomitant]
     Active Substance: DIMETHYL SULFONE
     Dates: start: 20230201
  42. CURCUMIN [Concomitant]
     Active Substance: CURCUMIN
     Dates: start: 20230201
  43. METHYLFOLAT [Concomitant]
     Dates: start: 20230201

REACTIONS (9)
  - Meniscus injury [Recovered/Resolved]
  - Hypothyroidism [Unknown]
  - Blood cholesterol increased [Unknown]
  - Vitamin D deficiency [Recovered/Resolved]
  - Medical diet [Recovered/Resolved]
  - Hypersensitivity [Unknown]
  - Arthritis [Unknown]
  - Seasonal allergy [Unknown]
  - Intentional product use issue [Unknown]

NARRATIVE: CASE EVENT DATE: 20151009
